FAERS Safety Report 5972969-5 (Version None)
Quarter: 2008Q4

REPORT INFORMATION
  Report Type: 
  Country: None (occurrence: None)
  Receive Date: 20081201
  Receipt Date: 20081121
  Transmission Date: 20090506
  Serious: Yes (Other)
  Sender: FDA-Public Use
  Company Number: PHHY2008US29514

PATIENT

DRUGS (1)
  1. DESFERAL [Suspect]
     Route: 042

REACTIONS (1)
  - RENAL FAILURE [None]
